APPROVED DRUG PRODUCT: CORLANOR
Active Ingredient: IVABRADINE
Strength: 5MG/5ML (1MG/ML)
Dosage Form/Route: SOLUTION;ORAL
Application: N209964 | Product #001
Applicant: AMGEN INC
Approved: Apr 22, 2019 | RLD: Yes | RS: Yes | Type: RX

PATENTS:
Patent 7867996 | Expires: Dec 12, 2026
Patent 7361650 | Expires: Feb 22, 2026
Patent 7361649 | Expires: Feb 22, 2026
Patent 7879842 | Expires: Feb 22, 2026

EXCLUSIVITY:
Code: ODE-234 | Date: Apr 22, 2026
Code: PED | Date: Oct 22, 2026